FAERS Safety Report 4732183-8 (Version None)
Quarter: 2005Q3

REPORT INFORMATION
  Report Type: 
  Country: None (occurrence: None)
  Receive Date: 20050725
  Receipt Date: 20040610
  Transmission Date: 20060218
  Serious: Yes (Death)
  Sender: FDA-Public Use
  Company Number: USA-2004-0015645

PATIENT

DRUGS (13)
  1. MORPHINE SULFATE [Suspect]
  2. HYDROCODONE (HYDROCODONE) [Suspect]
  3. CODEINE SUL TAB [Suspect]
  4. ACETAMINOPHEN [Suspect]
  5. BUTALBITAL [Suspect]
  6. PROMETHAZINE [Suspect]
  7. TRAZODONE (TRAZODONE) [Suspect]
  8. DIAZEPAM [Suspect]
  9. CAFFEINE (CAFFEINE) [Suspect]
  10. ZONISAMIDE (ZONISAMIDE) [Suspect]
  11. OLANZAPINE [Suspect]
  12. ETHANOL (ETHANOL) [Suspect]
  13. ZOLPIDEM TARTRATE [Suspect]

REACTIONS (1)
  - MULTIPLE DRUG OVERDOSE [None]
